FAERS Safety Report 5043017-9 (Version None)
Quarter: 2006Q2

REPORT INFORMATION
  Report Type: 
  Country: None (occurrence: None)
  Receive Date: 20060628
  Receipt Date: 20060622
  Transmission Date: 20061013
  Serious: Yes (Hospitalization)
  Sender: FDA-Public Use
  Company Number: LTI2006A00151

PATIENT
  Age: 76 Year
  Sex: Female

DRUGS (17)
  1. ACTOS [Suspect]
     Indication: DIABETES MELLITUS NON-INSULIN-DEPENDENT
     Dosage: 15 MG (15 MG, 1 IN 1 D) ORAL
     Route: 048
     Dates: start: 20050101, end: 20060210
  2. FENOFIBRATE [Suspect]
     Indication: DYSLIPIDAEMIA
     Dosage: 160 MG (160 MG, 1 IN 1 D) ORAL
     Route: 048
     Dates: end: 20060208
  3. MYCOSTATIN [Suspect]
     Indication: ORAL FUNGAL INFECTION
     Dosage: ORAL
     Route: 048
     Dates: start: 20060124, end: 20060127
  4. VAGOSTABYL (CALCIUM LACTATE, MAGNESIUM THIOSULFATE, CRATAEGUS LAEVIGAT [Suspect]
     Indication: CARDIAC DISORDER
     Dosage: ORAL
     Route: 048
     Dates: end: 20060208
  5. DAFLON (HESPERIDIN, DIOSMIN) [Suspect]
     Indication: VENOUS INSUFFICIENCY
     Dosage: 1000 MG (500 MG, 2 IN 1 D) ORAL
     Route: 048
     Dates: end: 20060208
  6. DIASTABOL (MIGLITOL) [Suspect]
     Indication: DIABETES MELLITUS NON-INSULIN-DEPENDENT
     Dosage: 100 MG (50 MG, 2 IN 1 D) ORAL
     Route: 048
     Dates: end: 20060208
  7. METFORMINE (METFORMIN) [Concomitant]
  8. KERLONE [Concomitant]
  9. LOXEN (NICARDIPINE HYDROCHLORIDE) [Concomitant]
  10. IXEL (MILNACIPRAN) [Concomitant]
  11. ACETAMINOPHEN [Concomitant]
  12. SPIRONOLACTONE [Concomitant]
  13. ASPIRIN [Concomitant]
  14. BRONCHOKOD (CARBOCISTEINE) [Concomitant]
  15. XANAX [Concomitant]
  16. MEGAMYLASE (ALPHA-AMYLASE SWINE PANCREAS) [Concomitant]
  17. FEXOFENADINE HCL [Concomitant]

REACTIONS (5)
  - DERMATITIS EXFOLIATIVE [None]
  - HAEMOGLOBIN DECREASED [None]
  - HYPERSENSITIVITY [None]
  - HYPOALBUMINAEMIA [None]
  - HYPOPROTEINAEMIA [None]
